FAERS Safety Report 12358259 (Version 1)
Quarter: 2016Q2

REPORT INFORMATION
  Report Type: Spontaneous
  Country: US (occurrence: None)
  Receive Date: 20160511
  Receipt Date: 20160511
  Transmission Date: 20160815
  Serious: No
  Sender: FDA-Public Use
  Company Number: None

PATIENT
  Age: 73 Year
  Sex: Male
  Weight: 79.38 kg

DRUGS (4)
  1. ASPIRIN. [Concomitant]
     Active Substance: ASPIRIN
  2. ALLOPURINOL. [Concomitant]
     Active Substance: ALLOPURINOL
  3. PROBENECID. [Concomitant]
     Active Substance: PROBENECID
  4. PREDNISONE 20 MG TAB - BOUGHT FROM PUBLIX PHARMACY [Suspect]
     Active Substance: PREDNISONE
     Indication: PAIN
     Dosage: 1-2 TIMES A DAY - FOR 3 DAYS / 1 EVERY DAY FOR 2 DAYS?1 1/2 - EVERY DAY - FOR 3 DAYS / 1/2 - EVERY DAY FOR 2 DAYS + STOP
     Dates: start: 20160115, end: 20160120

REACTIONS (4)
  - Product substitution issue [None]
  - Drug ineffective [None]
  - Wrong technique in product usage process [None]
  - Incorrect dose administered [None]

NARRATIVE: CASE EVENT DATE: 20160115
